FAERS Safety Report 4950815-6 (Version None)
Quarter: 2006Q1

REPORT INFORMATION
  Report Type: 
  Country: None (occurrence: None)
  Receive Date: 20060322
  Receipt Date: 20060314
  Transmission Date: 20060701
  Serious: Yes (Hospitalization)
  Sender: FDA-Public Use
  Company Number: FR-SANOFI-SYNTHELABO-A02200600714

PATIENT
  Age: 78 Year
  Sex: Male

DRUGS (4)
  1. PLAVIX [Suspect]
     Indication: DRUG USE FOR UNKNOWN INDICATION
     Route: 048
  2. NEXIUM [Suspect]
     Indication: DRUG USE FOR UNKNOWN INDICATION
     Route: 048
  3. TRIATEC [Suspect]
     Indication: DRUG USE FOR UNKNOWN INDICATION
     Dosage: 5 MG
     Route: 048
     Dates: end: 20060101
  4. TRIATEC [Suspect]
     Dosage: PROGRESSIVE DECREASE TO 1.25 MG/D
     Route: 048
     Dates: start: 20060101

REACTIONS (2)
  - FALL [None]
  - ORTHOSTATIC HYPOTENSION [None]
